FAERS Safety Report 22521617 (Version 6)
Quarter: 2024Q1

REPORT INFORMATION
  Report Type: Spontaneous
  Country: US (occurrence: US)
  Receive Date: 20230605
  Receipt Date: 20240313
  Transmission Date: 20240409
  Serious: No
  Sender: FDA-Public Use
  Company Number: US-PFIZER INC-PV202300012537

PATIENT
  Age: 78 Year
  Sex: Female

DRUGS (1)
  1. IBRANCE [Suspect]
     Active Substance: PALBOCICLIB
     Indication: Breast cancer female
     Dosage: TAKE 1 TABLET FOR 14 DAYS IN A ROW WITH 14 DAYS OFF
     Route: 048

REACTIONS (5)
  - Illness [Unknown]
  - Off label use [Unknown]
  - Product use issue [Unknown]
  - Movement disorder [Unknown]
  - Diarrhoea [Unknown]
